FAERS Safety Report 12313157 (Version 1)
Quarter: 2016Q2

REPORT INFORMATION
  Report Type: Spontaneous
  Country: FR (occurrence: FR)
  Receive Date: 20160428
  Receipt Date: 20160428
  Transmission Date: 20160815
  Serious: Yes (Hospitalization, Other)
  Sender: FDA-Public Use
  Company Number: FR-BAXTER-2016BAX020854

PATIENT
  Age: 28 Year
  Sex: Male

DRUGS (7)
  1. ZOPHREN [Suspect]
     Active Substance: ONDANSETRON
     Indication: PREMEDICATION
     Dosage: INFUSION
     Route: 042
     Dates: start: 20160323, end: 20160327
  2. UROMITEXAN 5 G/50 ML, SOLUTION INJECTABLE POUR PERFUSION EN FLACON [Suspect]
     Active Substance: MESNA
     Indication: BONE MARROW TRANSPLANT
     Dosage: INFUSION; H0, H3, H6, H9, H12 AND H15
     Route: 042
     Dates: start: 20160325, end: 20160326
  3. ENDOXAN 1000 MG, POUDRE POUR SOLUTION INJECTABLE [Suspect]
     Active Substance: CYCLOPHOSPHAMIDE
     Indication: BONE MARROW TRANSPLANT
     Dosage: INFUSION
     Route: 042
     Dates: start: 20160325, end: 20160326
  4. EMEND [Suspect]
     Active Substance: APREPITANT
     Route: 048
     Dates: start: 20160324, end: 20160325
  5. FLUDARABINE TEVA [Suspect]
     Active Substance: FLUDARABINE PHOSPHATE
     Indication: BONE MARROW TRANSPLANT
     Dosage: INFUSION, CONCENTRATE FOR SOLUTION FOR INJECTION/INFUSION
     Route: 042
     Dates: start: 20160323, end: 20160327
  6. EMEND [Suspect]
     Active Substance: APREPITANT
     Indication: PREMEDICATION
     Route: 048
     Dates: start: 20160323, end: 20160323
  7. PRIMPERAN [Suspect]
     Active Substance: METOCLOPRAMIDE HYDROCHLORIDE
     Indication: PREMEDICATION
     Dosage: INFUSION
     Route: 042
     Dates: start: 20160323, end: 20160327

REACTIONS (6)
  - Cystitis haemorrhagic [Not Recovered/Not Resolved]
  - Weight increased [Unknown]
  - Abdominal pain upper [Unknown]
  - Hyperbilirubinaemia [Unknown]
  - Generalised oedema [Unknown]
  - Thrombocytopenia [Unknown]

NARRATIVE: CASE EVENT DATE: 20160329
